FAERS Safety Report 7956743-6 (Version None)
Quarter: 2011Q4

REPORT INFORMATION
  Report Type: 
  Country: None (occurrence: None)
  Receive Date: 20111205
  Receipt Date: 20111125
  Transmission Date: 20120403
  Serious: Yes (Hospitalization, Other)
  Sender: FDA-Public Use
  Company Number: US-BAYER-2011-029367

PATIENT
  Age: 44 Year
  Sex: Female
  Weight: 86 kg

DRUGS (2)
  1. IBUPROFEN (ADVIL) [Concomitant]
     Dosage: UNK UNK, PRN
  2. YAZ [Suspect]
     Indication: CONTRACEPTION
     Dosage: UNK
     Dates: start: 20080201, end: 20080601

REACTIONS (8)
  - PAIN [None]
  - ANXIETY [None]
  - CEREBROVASCULAR ACCIDENT [None]
  - FEAR OF DISEASE [None]
  - TRANSIENT ISCHAEMIC ATTACK [None]
  - EMOTIONAL DISTRESS [None]
  - INJURY [None]
  - PSYCHOLOGICAL TRAUMA [None]
